FAERS Safety Report 8954259 (Version 2)
Quarter: 2013Q1

REPORT INFORMATION
  Report Type: Spontaneous
  Country: US (occurrence: US)
  Receive Date: 20121207
  Receipt Date: 20130102
  Transmission Date: 20140127
  Serious: Yes (Hospitalization)
  Sender: FDA-Public Use
  Company Number: PHEH2012US023970

PATIENT
  Sex: Female
  Weight: 66 kg

DRUGS (11)
  1. RECLAST [Suspect]
     Indication: OSTEOPOROSIS
     Dosage: 5 MG
     Route: 042
     Dates: start: 2007
  2. RECLAST [Suspect]
     Dosage: 5 MG
     Route: 042
     Dates: start: 2008
  3. RECLAST [Suspect]
     Dosage: 5 MG
     Route: 042
     Dates: start: 2009
  4. RECLAST [Suspect]
     Dosage: 5 MG
     Route: 042
     Dates: start: 2010
  5. RECLAST [Suspect]
     Dosage: 5 MG
     Route: 042
     Dates: start: 201107
  6. THYROID [Concomitant]
  7. CALCIUM + VIT D [Concomitant]
  8. LIPITOR [Concomitant]
  9. DIOVAN [Concomitant]
  10. NORVASC [Concomitant]
  11. LEXAPRO [Concomitant]

REACTIONS (5)
  - Atypical femur fracture [Unknown]
  - Injury [Unknown]
  - Groin pain [Unknown]
  - Bone disorder [Unknown]
  - Pain in extremity [Unknown]
